FAERS Safety Report 7041689-0 (Version None)
Quarter: 2010Q4

REPORT INFORMATION
  Report Type: 
  Country: None (occurrence: None)
  Receive Date: 20101013
  Receipt Date: 20100305
  Transmission Date: 20110411
  Serious: No
  Sender: FDA-Public Use
  Company Number: US-ASTRAZENECA-2010SE09614

PATIENT
  Sex: Female
  Weight: 90.7 kg

DRUGS (3)
  1. SYMBICORT [Suspect]
     Dosage: 640 MCG BID
     Route: 055
     Dates: start: 20090201
  2. SYNTHROID [Concomitant]
  3. LISINOPRIL [Concomitant]

REACTIONS (4)
  - FUNGAL INFECTION [None]
  - MUSCLE SPASMS [None]
  - ORAL CANDIDIASIS [None]
  - VULVOVAGINAL PRURITUS [None]
